FAERS Safety Report 15569392 (Version 1)
Quarter: 2018Q4

REPORT INFORMATION
  Report Type: Spontaneous
  Country: US (occurrence: US)
  Receive Date: 20181030
  Receipt Date: 20181030
  Transmission Date: 20190205
  Serious: Yes (Other)
  Sender: FDA-Public Use
  Company Number: None

PATIENT
  Age: 40 Year
  Sex: Female
  Weight: 83 kg

DRUGS (1)
  1. GIAPREZA [Suspect]
     Active Substance: ANGIOTENSIN II
     Indication: SEPTIC SHOCK
     Route: 017

REACTIONS (4)
  - Portal vein thrombosis [None]
  - Platelet count decreased [None]
  - Portal vein occlusion [None]
  - Hypoglycaemia [None]

NARRATIVE: CASE EVENT DATE: 20181009
